FAERS Safety Report 5244011-5 (Version None)
Quarter: 2007Q1

REPORT INFORMATION
  Report Type: 
  Country: None (occurrence: None)
  Receive Date: 20070222
  Receipt Date: 20070215
  Transmission Date: 20070707
  Serious: Yes (Death, Hospitalization)
  Sender: FDA-Public Use
  Company Number: IL-JNJFOC-20070204195

PATIENT
  Sex: Male

DRUGS (4)
  1. DURAGESIC-100 [Suspect]
     Indication: ARTHRALGIA
     Route: 062
  2. SUNITINIB MALATE [Concomitant]
     Indication: RENAL CELL CARCINOMA STAGE UNSPECIFIED
     Route: 048
  3. MORPHINE [Concomitant]
     Route: 048
  4. OPTALGIN [Concomitant]
     Route: 048

REACTIONS (3)
  - ASCITES [None]
  - DISEASE PROGRESSION [None]
  - ILEUS [None]
